FAERS Safety Report 4498350-6 (Version None)
Quarter: 2004Q4

REPORT INFORMATION
  Report Type: 
  Country: None (occurrence: None)
  Receive Date: 20041104
  Receipt Date: 20041019
  Transmission Date: 20050328
  Serious: Yes (Hospitalization)
  Sender: FDA-Public Use
  Company Number: 2004-BP-04905NB

PATIENT
  Age: 60 Year
  Sex: Male

DRUGS (1)
  1. MICARDIS [Suspect]
     Indication: HYPERTENSION
     Dosage: 180 MG (20 MG)
     Route: 048
     Dates: start: 20040220, end: 20040528

REACTIONS (6)
  - DECREASED APPETITE [None]
  - HEADACHE [None]
  - MEDICATION ERROR [None]
  - MYALGIA [None]
  - OVERDOSE [None]
  - RASH [None]
